APPROVED DRUG PRODUCT: FOSAMAX PLUS D
Active Ingredient: ALENDRONATE SODIUM; CHOLECALCIFEROL
Strength: EQ 70MG BASE;2,800 IU
Dosage Form/Route: TABLET;ORAL
Application: N021762 | Product #001
Applicant: ORGANON LLC
Approved: Apr 7, 2005 | RLD: Yes | RS: No | Type: RX